FAERS Safety Report 12390011 (Version 2)
Quarter: 2016Q2

REPORT INFORMATION
  Report Type: Report from Study
  Country: IT (occurrence: IT)
  Receive Date: 20160520
  Receipt Date: 20160610
  Transmission Date: 20160815
  Serious: Yes (Death, Hospitalization, Other)
  Sender: FDA-Public Use
  Company Number: IT-SEATTLE GENETICS-2016SGN00647

PATIENT

DRUGS (9)
  1. BRENTUXIMAB VEDOTIN [Suspect]
     Active Substance: BRENTUXIMAB VEDOTIN
     Indication: PERIPHERAL T-CELL LYMPHOMA UNSPECIFIED
     Dosage: 1.8 MG/KG, QD
     Route: 042
     Dates: start: 20151230, end: 20160314
  2. ARACYTINE [Suspect]
     Active Substance: CYTARABINE
     Indication: HODGKIN^S DISEASE
     Dosage: UNK
     Route: 065
     Dates: start: 20160427
  3. BRENTUXIMAB VEDOTIN [Suspect]
     Active Substance: BRENTUXIMAB VEDOTIN
     Indication: HODGKIN^S DISEASE
  4. CISPLATIN. [Suspect]
     Active Substance: CISPLATIN
     Indication: HODGKIN^S DISEASE
     Dosage: UNK
     Route: 065
     Dates: start: 20160427
  5. CISPLATIN. [Suspect]
     Active Substance: CISPLATIN
     Dosage: UNK
     Route: 065
     Dates: start: 20160527, end: 20160527
  6. DEXAMETHASONE. [Suspect]
     Active Substance: DEXAMETHASONE
     Indication: HODGKIN^S DISEASE
     Dosage: UNK
     Route: 065
     Dates: start: 20160427
  7. BENDAMUSTINE HYDROCHLORIDE. [Suspect]
     Active Substance: BENDAMUSTINE HYDROCHLORIDE
     Indication: PERIPHERAL T-CELL LYMPHOMA UNSPECIFIED
     Dosage: 90 MG/M2, UNK
     Route: 042
     Dates: start: 20151230, end: 20160315
  8. ARACYTINE [Suspect]
     Active Substance: CYTARABINE
     Dosage: UNK
     Route: 065
     Dates: start: 20160528, end: 20160528
  9. DEXAMETHASONE. [Suspect]
     Active Substance: DEXAMETHASONE
     Dosage: UNK
     Route: 065
     Dates: start: 20160527, end: 20160530

REACTIONS (2)
  - Epstein-Barr virus associated lymphoproliferative disorder [None]
  - Multiple organ dysfunction syndrome [Fatal]

NARRATIVE: CASE EVENT DATE: 20160530
